FAERS Safety Report 4749218-9 (Version None)
Quarter: 2005Q3

REPORT INFORMATION
  Report Type: 
  Country: None (occurrence: None)
  Receive Date: 20050817
  Receipt Date: 20050805
  Transmission Date: 20060218
  Serious: Yes (Hospitalization)
  Sender: FDA-Public Use
  Company Number: 11978

PATIENT
  Age: 69 Year
  Sex: Male

DRUGS (2)
  1. MORPHINE [Suspect]
     Indication: FEMUR FRACTURE
     Dosage: 3.5 MG ONCE, IV
     Route: 042
     Dates: start: 20050511, end: 20050511
  2. METOCLOPRAMIDE [Concomitant]

REACTIONS (4)
  - CATHETER SITE RELATED REACTION [None]
  - ERYTHEMA [None]
  - PARAESTHESIA [None]
  - RASH MACULAR [None]
